FAERS Safety Report 17029238 (Version 1)
Quarter: 2019Q4

REPORT INFORMATION
  Report Type: Spontaneous
  Country: US (occurrence: US)
  Receive Date: 20191114
  Receipt Date: 20191114
  Transmission Date: 20200122
  Serious: Yes (Hospitalization, Other)
  Sender: FDA-Public Use
  Company Number: US-DRREDDYS-USA/USA/19/0116036

PATIENT
  Age: 58 Year
  Sex: Female

DRUGS (4)
  1. CALCITRIOL. [Concomitant]
     Active Substance: CALCITRIOL
     Indication: PRODUCT USED FOR UNKNOWN INDICATION
  2. CHLORTHALIDONE. [Concomitant]
     Active Substance: CHLORTHALIDONE
     Indication: PRODUCT USED FOR UNKNOWN INDICATION
  3. LANSOPRAZOLE DELAYED-RELEASE CAPSULES [Suspect]
     Active Substance: LANSOPRAZOLE
     Indication: DYSPEPSIA
  4. LANSOPRAZOLE DELAYED-RELEASE CAPSULES [Suspect]
     Active Substance: LANSOPRAZOLE
     Indication: ABDOMINAL DISTENSION
     Dosage: UNKNOWN QUANTITY

REACTIONS (1)
  - Hypocalcaemia [Recovered/Resolved]
